FAERS Safety Report 8344860-0 (Version None)
Quarter: 2012Q2

REPORT INFORMATION
  Report Type: 
  Country: None (occurrence: None)
  Receive Date: 20120508
  Receipt Date: 20120501
  Transmission Date: 20120825
  Serious: Yes (Hospitalization, Congenital Anomaly)
  Sender: FDA-Public Use
  Company Number: US-GLAXOSMITHKLINE-A0976619A

PATIENT
  Sex: Male
  Weight: 4 kg

DRUGS (12)
  1. AZITHROMYCIN [Concomitant]
  2. COMBIVENT [Concomitant]
     Dates: start: 20031101
  3. TOPAMAX [Concomitant]
     Dates: end: 20031001
  4. BUSPAR [Concomitant]
  5. PAROXETINE [Suspect]
     Indication: DEPRESSION
     Route: 064
  6. PROMETRIUM [Concomitant]
  7. MEFOXIN [Concomitant]
     Dates: start: 20031101
  8. ALBUTEROL [Concomitant]
     Dates: start: 20031101
  9. NIFEREX [Concomitant]
  10. PAXIL [Suspect]
     Indication: DEPRESSION
     Dosage: 45MG PER DAY
     Route: 064
  11. PRIMACOR [Concomitant]
  12. PREDNISONE TAB [Concomitant]
     Dates: start: 20031101

REACTIONS (2)
  - SYNDACTYLY [None]
  - FOETAL EXPOSURE DURING PREGNANCY [None]
